FAERS Safety Report 17779452 (Version 5)
Quarter: 2020Q4

REPORT INFORMATION
  Report Type: Other
  Country: CA (occurrence: CA)
  Receive Date: 20200514
  Receipt Date: 20201021
  Transmission Date: 20210113
  Serious: Yes (Other)
  Sender: FDA-Public Use
  Company Number: CA-ROCHE-2089229

PATIENT
  Age: 49 Year
  Sex: Male

DRUGS (5)
  1. ELTROXIN [Concomitant]
     Active Substance: LEVOTHYROXINE
  2. FAMPYRA [Concomitant]
     Active Substance: DALFAMPRIDINE
  3. LEVOTHYROXINE. [Concomitant]
     Active Substance: LEVOTHYROXINE
  4. OCREVUS [Suspect]
     Active Substance: OCRELIZUMAB
     Dosage: DAY 0 WAS 21/FEB/2018, DAY 14 WAS 02/MAR/2018
     Route: 042
     Dates: start: 20180302
  5. OCREVUS [Suspect]
     Active Substance: OCRELIZUMAB
     Indication: RELAPSING-REMITTING MULTIPLE SCLEROSIS
     Dosage: DAY 0 WAS 21/FEB/2018, DAY 14 WAS 02/MAR/2018?LIQUID 300 MG DAY 0 AND DAY 14, THEN 600 MG EVERY 6 MO
     Route: 042
     Dates: start: 20180221

REACTIONS (12)
  - Peripheral swelling [Recovering/Resolving]
  - Skin ulcer [Recovering/Resolving]
  - Musculoskeletal stiffness [Recovered/Resolved with Sequelae]
  - Infusion related reaction [Recovered/Resolved]
  - Hypoaesthesia [Not Recovered/Not Resolved]
  - Restless legs syndrome [Not Recovered/Not Resolved]
  - Fatigue [Recovering/Resolving]
  - Thrombosis [Recovered/Resolved]
  - Infusion related reaction [Recovered/Resolved]
  - Renal pain [Not Recovered/Not Resolved]
  - Gastrointestinal disorder [Not Recovered/Not Resolved]
  - Infusion site pain [Recovered/Resolved with Sequelae]

NARRATIVE: CASE EVENT DATE: 201803
